FAERS Safety Report 7663099-5 (Version None)
Quarter: 2011Q3

REPORT INFORMATION
  Report Type: 
  Country: None (occurrence: None)
  Receive Date: 20110805
  Receipt Date: 20100921
  Transmission Date: 20111222
  Serious: No
  Sender: FDA-Public Use
  Company Number: US-ABBOTT-10P-163-0672319-00

PATIENT
  Sex: Male
  Weight: 86.26 kg

DRUGS (2)
  1. UNKNOWN MEDICATION [Concomitant]
     Indication: PROSTATIC DISORDER
  2. NIASPAN [Suspect]
     Indication: LOW DENSITY LIPOPROTEIN INCREASED
     Dates: start: 20100917

REACTIONS (1)
  - FLUSHING [None]
